FAERS Safety Report 23909464 (Version 1)
Quarter: 2024Q2

REPORT INFORMATION
  Report Type: Spontaneous
  Country: US (occurrence: US)
  Receive Date: 20240528
  Receipt Date: 20240528
  Transmission Date: 20240716
  Serious: No
  Sender: FDA-Public Use
  Company Number: US-Millicent Holdings Ltd.-MILL20240913

PATIENT
  Age: 61 Year
  Sex: Female

DRUGS (2)
  1. FEMRING [Suspect]
     Active Substance: ESTRADIOL ACETATE
     Indication: Atrophic vulvovaginitis
     Dosage: 0.10 MG / DAY
     Route: 067
     Dates: end: 20240512
  2. FEMRING [Suspect]
     Active Substance: ESTRADIOL ACETATE
     Indication: Vulvovaginal dryness
     Dosage: 0.10 MG / DAY
     Route: 067
     Dates: start: 20231110

REACTIONS (4)
  - Vulvovaginal pain [Not Recovered/Not Resolved]
  - Vaginal haemorrhage [Not Recovered/Not Resolved]
  - Inappropriate schedule of product administration [None]
  - Contraindicated product administered [None]

NARRATIVE: CASE EVENT DATE: 20231110
